FAERS Safety Report 25271353 (Version 2)
Quarter: 2025Q2

REPORT INFORMATION
  Report Type: Report from Study
  Country: PA (occurrence: PA)
  Receive Date: 20250506
  Receipt Date: 20250524
  Transmission Date: 20250716
  Serious: Yes (Life-Threatening, Hospitalization, Disabling, Other)
  Sender: TOLMAR
  Company Number: PA-Tolmar-TLM-2025-01013

PATIENT
  Age: 81 Year
  Sex: Male

DRUGS (4)
  1. ELIGARD [Suspect]
     Active Substance: LEUPROLIDE ACETATE
     Indication: Prostate cancer
     Dosage: ELIGARD 45 MG X 1 LIO X 1 JER
     Route: 058
     Dates: start: 20240401
  2. ELIGARD [Suspect]
     Active Substance: LEUPROLIDE ACETATE
     Indication: Prostate cancer
  3. XTANDI [Suspect]
     Active Substance: ENZALUTAMIDE
     Indication: Prostate cancer
     Dosage: 40 MILLIGRAM, QID?XTANDI 40 MG X 120 CAP X 30 FND
     Route: 048
     Dates: start: 20240401
  4. XTANDI [Suspect]
     Active Substance: ENZALUTAMIDE
     Dates: start: 202505

REACTIONS (8)
  - Cerebral ischaemia [Unknown]
  - Chronic disease [Not Recovered/Not Resolved]
  - Condition aggravated [Not Recovered/Not Resolved]
  - Pyrexia [Unknown]
  - Blood glucose increased [Not Recovered/Not Resolved]
  - Syncope [Unknown]
  - Hypotension [Unknown]
  - Intentional dose omission [Unknown]

NARRATIVE: CASE EVENT DATE: 20250409
